FAERS Safety Report 16185891 (Version 1)
Quarter: 2019Q2

REPORT INFORMATION
  Report Type: Spontaneous
  Country: DE (occurrence: DE)
  Receive Date: 20190411
  Receipt Date: 20190411
  Transmission Date: 20190711
  Serious: Yes (Other)
  Sender: FDA-Public Use
  Company Number: PHHY2019DE078784

PATIENT
  Sex: Male
  Weight: 65 kg

DRUGS (3)
  1. EXJADE [Suspect]
     Active Substance: DEFERASIROX
     Indication: THALASSAEMIA
     Dosage: 80 MG, QD
     Route: 065
     Dates: start: 2018, end: 2018
  2. EXJADE [Suspect]
     Active Substance: DEFERASIROX
     Dosage: 540 MG, QD (3X 180 MG)
     Route: 065
  3. ERYTHROCYTES [Concomitant]
     Active Substance: HUMAN RED BLOOD CELL
     Indication: PRODUCT USED FOR UNKNOWN INDICATION
     Dosage: 2 DF, Q3W (2 EC EVERY THREE WEEK)

REACTIONS (3)
  - Endocarditis staphylococcal [Unknown]
  - Diarrhoea [Not Recovered/Not Resolved]
  - Serum ferritin increased [Unknown]

NARRATIVE: CASE EVENT DATE: 2018
